FAERS Safety Report 7189231-8 (Version None)
Quarter: 2010Q4

REPORT INFORMATION
  Report Type: 
  Country: None (occurrence: None)
  Receive Date: 20101222
  Receipt Date: 20101215
  Transmission Date: 20110411
  Serious: Yes (Hospitalization)
  Sender: FDA-Public Use
  Company Number: US-US-EMD SERONO, INC.-7030763

PATIENT
  Sex: Female

DRUGS (4)
  1. REBIF [Suspect]
     Indication: MULTIPLE SCLEROSIS
     Route: 058
     Dates: start: 20091201
  2. AMPYRA EXTENDED RELEASE [Concomitant]
  3. ZOFRAN [Concomitant]
  4. BACLOFEN [Concomitant]

REACTIONS (4)
  - DEHYDRATION [None]
  - ENTERITIS [None]
  - LABORATORY TEST ABNORMAL [None]
  - MALAISE [None]
